FAERS Safety Report 8609964-3 (Version None)
Quarter: 2012Q3

REPORT INFORMATION
  Report Type: 
  Country: None (occurrence: None)
  Receive Date: 20120821
  Receipt Date: 20120808
  Transmission Date: 20120928
  Serious: Yes (Hospitalization)
  Sender: FDA-Public Use
  Company Number: RS-MYLANLABS-2012S1016607

PATIENT
  Age: 55 Year
  Sex: Female

DRUGS (2)
  1. LEVOTHYROXINE SODIUM [Concomitant]
     Indication: HYPOTHYROIDISM
     Route: 065
  2. NITROFURANTOIN [Suspect]
     Indication: URINARY TRACT INFECTION BACTERIAL
     Route: 065

REACTIONS (7)
  - NEURODERMATITIS [None]
  - MULTI-ORGAN DISORDER [None]
  - SJOGREN'S SYNDROME [None]
  - AUTOIMMUNE HEPATITIS [None]
  - PULMONARY EOSINOPHILIA [None]
  - INTERSTITIAL LUNG DISEASE [None]
  - IMMUNE SYSTEM DISORDER [None]
